FAERS Safety Report 17439197 (Version 1)
Quarter: 2020Q1

REPORT INFORMATION
  Report Type: Spontaneous
  Country: FR (occurrence: FR)
  Receive Date: 20200220
  Receipt Date: 20200220
  Transmission Date: 20200409
  Serious: Yes (Disabling, Other)
  Sender: FDA-Public Use
  Company Number: FR-DENTSPLY-2020SCDP000035

PATIENT
  Sex: Female

DRUGS (1)
  1. XYLOCAINE [Suspect]
     Active Substance: LIDOCAINE HYDROCHLORIDE
     Indication: GINGIVAL PAIN
     Dosage: GEL
     Route: 050
     Dates: start: 20200103, end: 20200103

REACTIONS (3)
  - Off label use [Unknown]
  - Pain in extremity [None]
  - Gingival pain [None]

NARRATIVE: CASE EVENT DATE: 20200103
